FAERS Safety Report 4966295-0 (Version None)
Quarter: 2006Q1

REPORT INFORMATION
  Report Type: 
  Country: None (occurrence: None)
  Receive Date: 20060201
  Receipt Date: 20051129
  Transmission Date: 20060701
  Serious: No
  Sender: FDA-Public Use
  Company Number: 2005PV005077

PATIENT
  Age: 40 Year
  Sex: Male

DRUGS (5)
  1. BYETTA [Suspect]
     Indication: DIABETES MELLITUS NON-INSULIN-DEPENDENT
     Dosage: 5 MCG;BID;SC
     Route: 058
     Dates: start: 20050101, end: 20050101
  2. GLUCOPHAGE [Concomitant]
  3. GLUCOTROL [Concomitant]
  4. AVANDIA [Concomitant]
  5. LIPITOR [Concomitant]

REACTIONS (3)
  - PRURITUS GENERALISED [None]
  - URTICARIA [None]
  - WEIGHT DECREASED [None]
